FAERS Safety Report 9711672 (Version 1)
Quarter: 2013Q4

REPORT INFORMATION
  Report Type: Spontaneous
  Country: US (occurrence: US)
  Receive Date: 20131126
  Receipt Date: 20131126
  Transmission Date: 20140711
  Serious: No
  Sender: FDA-Public Use
  Company Number: US-BRISTOL-MYERS SQUIBB COMPANY-19089655

PATIENT
  Age: 75 Year
  Sex: Female

DRUGS (4)
  1. BYDUREON [Suspect]
     Dates: start: 20130211
  2. GLIPIZIDE [Concomitant]
  3. GLUCOVANCE [Concomitant]
     Dosage: FORMULATION-GLUCOVANCE 2.5/500?2 IN AM, 2 IN PM
  4. JANUVIA [Concomitant]

REACTIONS (2)
  - Injection site mass [Unknown]
  - Injection site pruritus [Recovered/Resolved]
